FAERS Safety Report 16943381 (Version 5)
Quarter: 2019Q4

REPORT INFORMATION
  Report Type: Report from Study
  Country: IT (occurrence: IT)
  Receive Date: 20191022
  Receipt Date: 20191225
  Transmission Date: 20200122
  Serious: Yes (Hospitalization)
  Sender: FDA-Public Use
  Company Number: IT-ROCHE-2438349

PATIENT
  Age: 61 Year
  Sex: Male
  Weight: 145 kg

DRUGS (20)
  1. DILZENE [Concomitant]
     Active Substance: DILTIAZEM HYDROCHLORIDE
     Route: 048
  2. OXYCONTIN [Concomitant]
     Active Substance: OXYCODONE HYDROCHLORIDE
     Route: 048
     Dates: start: 20190918
  3. GLICLAZIDE [Concomitant]
     Active Substance: GLICLAZIDE
     Route: 048
     Dates: end: 20190215
  4. GLICLAZIDE [Concomitant]
     Active Substance: GLICLAZIDE
     Route: 048
     Dates: start: 20190216
  5. WARFARIN [Concomitant]
     Active Substance: WARFARIN
     Route: 065
     Dates: start: 20180730
  6. COUMADIN [Concomitant]
     Active Substance: WARFARIN SODIUM
     Route: 065
     Dates: start: 20180821
  7. BODINET [Concomitant]
     Indication: COUGH
     Dosage: 1 INHALATION
     Route: 050
     Dates: start: 20190313
  8. ATEZOLIZUMAB. [Suspect]
     Active Substance: ATEZOLIZUMAB
     Indication: NON-SMALL CELL LUNG CANCER METASTATIC
     Dosage: MOST RECENT DOSE ON 25/JUL/2019 AT 10:45, PRIOR TO EVENT ONSET.
     Route: 042
     Dates: start: 20180226, end: 20190919
  9. AMOXICILLIN;CLAVULANIC ACID [Concomitant]
     Active Substance: AMOXICILLIN\CLAVULANIC ACID
     Indication: PROPHYLAXIS
     Route: 048
     Dates: start: 20180731
  10. PIPERACILLINA/TAZOBACTAM [Concomitant]
     Active Substance: PIPERACILLIN SODIUM\TAZOBACTAM SODIUM
     Route: 042
     Dates: start: 20190208
  11. DEPALGOS [Concomitant]
     Active Substance: ACETAMINOPHEN\OXYCODONE HYDROCHLORIDE
     Indication: PAIN IN EXTREMITY
     Dosage: 1 CAPSULE
     Route: 048
     Dates: start: 20190502, end: 20190916
  12. LEVOXACIN [Concomitant]
     Active Substance: LEVOFLOXACIN
     Indication: PYREXIA
     Route: 048
     Dates: start: 20190701
  13. ORAMORPH SR SUSTAINED RELEASE [Concomitant]
     Active Substance: MORPHINE SULFATE
     Indication: PAIN
     Route: 048
     Dates: start: 20190916, end: 20190917
  14. ERDOSTEINA [Concomitant]
     Indication: COUGH
     Dosage: 1 GRAIN
     Route: 048
     Dates: start: 20180616
  15. COMBISARTAN [Concomitant]
     Active Substance: HYDROCHLOROTHIAZIDE\VALSARTAN
     Dosage: 160
     Route: 065
  16. ALIFLUS [Concomitant]
     Active Substance: FLUTICASONE PROPIONATE\SALMETEROL XINAFOATE
     Dosage: 1 PUFF
     Route: 050
  17. LEVOXACIN [Concomitant]
     Active Substance: LEVOFLOXACIN
     Indication: ERYSIPELAS
     Route: 048
     Dates: start: 20190827
  18. ORAMORPH SR SUSTAINED RELEASE [Concomitant]
     Active Substance: MORPHINE SULFATE
     Route: 048
     Dates: start: 20190918
  19. TARDYFER [Concomitant]
     Active Substance: FERROUS SULFATE
     Indication: BLOOD IRON DECREASED
     Dosage: 1 CAPSULE
     Route: 048
     Dates: start: 20190701
  20. OXYCONTIN [Concomitant]
     Active Substance: OXYCODONE HYDROCHLORIDE
     Indication: PAIN
     Route: 048
     Dates: start: 20190916, end: 20190917

REACTIONS (1)
  - Acute kidney injury [Recovered/Resolved]

NARRATIVE: CASE EVENT DATE: 20191005
